FAERS Safety Report 20937944 (Version 1)
Quarter: 2022Q2

REPORT INFORMATION
  Report Type: Spontaneous
  Country: US (occurrence: US)
  Receive Date: 20220609
  Receipt Date: 20220609
  Transmission Date: 20220721
  Serious: No
  Sender: FDA-Public Use
  Company Number: US-UNITED THERAPEUTICS-UNT-2022-012436

PATIENT
  Sex: Male

DRUGS (2)
  1. TYVASO [Suspect]
     Active Substance: TREPROSTINIL
     Indication: Pulmonary arterial hypertension
     Dosage: UNK
     Dates: start: 202201
  2. TYVASO [Suspect]
     Active Substance: TREPROSTINIL
     Dosage: 72 ?G, QID

REACTIONS (8)
  - Cough [Unknown]
  - Throat irritation [Unknown]
  - Constipation [Unknown]
  - Dyspnoea exertional [Unknown]
  - Productive cough [Unknown]
  - Arthralgia [Unknown]
  - Pain in extremity [Unknown]
  - Pleural effusion [Recovering/Resolving]
